FAERS Safety Report 13075369 (Version 1)
Quarter: 2016Q4

REPORT INFORMATION
  Report Type: Spontaneous
  Country: BR (occurrence: BR)
  Receive Date: 20161230
  Receipt Date: 20161230
  Transmission Date: 20170207
  Serious: Yes (Hospitalization)
  Sender: FDA-Public Use
  Company Number: BR-GLAXOSMITHKLINE-BR2016GSK175979

PATIENT
  Age: 11 Year
  Sex: Female

DRUGS (2)
  1. AEROLIN [Suspect]
     Active Substance: ALBUTEROL
     Indication: ASTHMA
     Dosage: 4 PUFF(S), QID
  2. AEROLIN [Suspect]
     Active Substance: ALBUTEROL
     Dosage: 20 PUFF(S), EACH HOUR

REACTIONS (6)
  - Off label use [Unknown]
  - Product odour abnormal [Unknown]
  - Adverse event [Unknown]
  - Overdose [Unknown]
  - Incorrect dose administered [Unknown]
  - Product quality issue [Unknown]
